FAERS Safety Report 20292391 (Version 1)
Quarter: 2022Q1

REPORT INFORMATION
  Report Type: Spontaneous
  Country: CN (occurrence: CN)
  Receive Date: 20220104
  Receipt Date: 20220104
  Transmission Date: 20220423
  Serious: Yes (Hospitalization, Other)
  Sender: FDA-Public Use
  Company Number: CN-009507513-2112CHN010160

PATIENT
  Age: 80 Year
  Sex: Male

DRUGS (1)
  1. CILASTATIN SODIUM\IMIPENEM [Suspect]
     Active Substance: CILASTATIN SODIUM\IMIPENEM
     Indication: Anti-infective therapy
     Dosage: 1 GRAM, Q8H
     Route: 041
     Dates: start: 20210311, end: 20210320

REACTIONS (3)
  - Dysbiosis [Recovering/Resolving]
  - Enterococcal infection [Recovering/Resolving]
  - Staphylococcus test positive [Unknown]

NARRATIVE: CASE EVENT DATE: 20210317
